FAERS Safety Report 7804883-4 (Version None)
Quarter: 2011Q4

REPORT INFORMATION
  Report Type: 
  Country: None (occurrence: None)
  Receive Date: 20111010
  Receipt Date: 20111004
  Transmission Date: 20120403
  Serious: Yes (Death)
  Sender: FDA-Public Use
  Company Number: BE-MERCK-1105BEL00006

PATIENT
  Age: 57 Year
  Sex: Female

DRUGS (6)
  1. TEICOPLANIN [Concomitant]
     Route: 065
  2. CEFTAZIDIME [Concomitant]
     Route: 065
  3. CANCIDAS [Suspect]
     Indication: EVIDENCE BASED TREATMENT
     Route: 041
  4. CYTARABINE [Concomitant]
     Route: 065
  5. MEROPENEM [Concomitant]
     Route: 065
  6. AMSACRINE [Concomitant]
     Route: 041

REACTIONS (5)
  - ABDOMINAL COMPARTMENT SYNDROME [None]
  - PATHOGEN RESISTANCE [None]
  - DEATH [None]
  - FUNGAL INFECTION [None]
  - RELAPSING FEVER [None]
